FAERS Safety Report 8173569-1 (Version None)
Quarter: 2012Q1

REPORT INFORMATION
  Report Type: 
  Country: None (occurrence: None)
  Receive Date: 20120229
  Receipt Date: 20120228
  Transmission Date: 20120608
  Serious: Yes (Other)
  Sender: FDA-Public Use
  Company Number: US-JNJFOC-2005068552

PATIENT
  Age: 42 Year
  Sex: Female
  Weight: 49.9 kg

DRUGS (6)
  1. NASORAL [Concomitant]
     Indication: SEASONAL ALLERGY
     Dosage: DAILY DOSE TEXT: UNSPECIFIED
     Route: 065
     Dates: start: 20040101
  2. PEPCID AC [Suspect]
     Route: 065
  3. PEPCID AC [Suspect]
     Indication: RASH
     Dosage: DAILY DOSE TEXT: UNSPECIFIED
     Route: 065
     Dates: start: 20050423
  4. LISTERINE [Suspect]
     Indication: DENTAL DISORDER PROPHYLAXIS
     Dosage: DAILY DOSE TEXT: 1 CAPFUL HS
     Route: 048
     Dates: start: 20050101, end: 20050427
  5. BENADRYL [Suspect]
     Route: 065
  6. BENADRYL [Suspect]
     Indication: RASH
     Dosage: DAILY DOSE TEXT: UNSPECIFIED
     Route: 065
     Dates: start: 20050423

REACTIONS (6)
  - RASH GENERALISED [None]
  - RASH [None]
  - RASH ERYTHEMATOUS [None]
  - SKIN DISORDER [None]
  - ERYTHEMA [None]
  - EYE PRURITUS [None]
